FAERS Safety Report 24622318 (Version 1)
Quarter: 2024Q4

REPORT INFORMATION
  Report Type: Spontaneous
  Country: US (occurrence: US)
  Receive Date: 20241115
  Receipt Date: 20241115
  Transmission Date: 20250114
  Serious: No
  Sender: GLENMARK
  Company Number: US-GLENMARK PHARMACEUTICALS-2024GMK090459

PATIENT

DRUGS (1)
  1. ADAPALENE\BENZOYL PEROXIDE [Suspect]
     Active Substance: ADAPALENE\BENZOYL PEROXIDE
     Indication: Acne
     Dosage: UNK, HS (ONCE A DAY AT BED TIME)
     Route: 061
     Dates: start: 20240421, end: 20240424

REACTIONS (6)
  - Skin texture abnormal [Recovered/Resolved]
  - Eczema [Recovered/Resolved]
  - Application site swelling [Recovered/Resolved]
  - Skin swelling [Recovered/Resolved]
  - Application site pain [Recovered/Resolved]
  - Drug ineffective [Unknown]

NARRATIVE: CASE EVENT DATE: 20240422
